FAERS Safety Report 9087792 (Version 1)
Quarter: 2013Q1

REPORT INFORMATION
  Report Type: Spontaneous
  Country: PE (occurrence: PE)
  Receive Date: 20130201
  Receipt Date: 20130201
  Transmission Date: 20140127
  Serious: Yes (Death)
  Sender: FDA-Public Use
  Company Number: PE-B.I. PHARMACEUTICALS,INC./RIDGEFIELD-2013-RA-00018RA

PATIENT
  Age: 63 Year
  Sex: Female

DRUGS (1)
  1. PRADAXA [Suspect]
     Indication: VENOUS THROMBOSIS
     Dosage: 220 MG
     Route: 048
     Dates: start: 201210, end: 20121122

REACTIONS (1)
  - Renal cancer [Fatal]
